FAERS Safety Report 13279504 (Version 1)
Quarter: 2017Q1

REPORT INFORMATION
  Report Type: Spontaneous
  Country: US (occurrence: US)
  Receive Date: 20170228
  Receipt Date: 20170228
  Transmission Date: 20170428
  Serious: Yes (Death)
  Sender: FDA-Public Use
  Company Number: None

PATIENT
  Age: 42 Year
  Sex: Female

DRUGS (9)
  1. CAPECITABINE 500MG [Suspect]
     Active Substance: CAPECITABINE
     Indication: NEOPLASM MALIGNANT
     Route: 048
     Dates: start: 20160826, end: 20170124
  2. LISINOPRIL. [Concomitant]
     Active Substance: LISINOPRIL
  3. PROBIOTIC [Concomitant]
     Active Substance: PROBIOTICS NOS
  4. XANAX [Concomitant]
     Active Substance: ALPRAZOLAM
  5. MULTI  VITAMIN [Concomitant]
     Active Substance: VITAMINS
  6. LETROZOLE. [Concomitant]
     Active Substance: LETROZOLE
  7. HAIR/SKIN [Concomitant]
  8. IBRANCE [Suspect]
     Active Substance: PALBOCICLIB
     Indication: NEOPLASM MALIGNANT
     Route: 048
     Dates: start: 20160823, end: 20170124
  9. ATIVAN [Concomitant]
     Active Substance: LORAZEPAM

REACTIONS (1)
  - Death [None]

NARRATIVE: CASE EVENT DATE: 20170124
